FAERS Safety Report 8304079-6 (Version None)
Quarter: 2012Q2

REPORT INFORMATION
  Report Type: 
  Country: None (occurrence: None)
  Receive Date: 20120418
  Receipt Date: 20120406
  Transmission Date: 20120825
  Serious: No
  Sender: FDA-Public Use
  Company Number: SPI201200033

PATIENT
  Age: 70 Year
  Sex: Male
  Weight: 80.7 kg

DRUGS (19)
  1. COREG CR (CARVEDILOL) [Concomitant]
  2. AMITRIPTYLINE HCL [Suspect]
     Dosage: 10 MG, QD, HS
     Dates: start: 20110609
  3. ALPRAZOLAM EXTENDED-RELEASE [Concomitant]
  4. CRESTOR (ROSUVATATIN) [Concomitant]
  5. WELCHOL [Concomitant]
  6. PREVACID [Concomitant]
  7. ASPIRIN [Concomitant]
  8. CHONDROITIN SULFATE W/GLUCOSAMINE (CHONDROITIN SULFATE W/GLUCOSAMINE) [Concomitant]
  9. AMITIZA [Suspect]
     Indication: CONSTIPATION
     Dosage: 24 MCG, QD, ORAL; 16 MCG, QD, ORAL; 8 MCG, BID, ORAL
     Route: 048
     Dates: start: 20120216
  10. AMITIZA [Suspect]
     Indication: CONSTIPATION
     Dosage: 24 MCG, QD, ORAL; 16 MCG, QD, ORAL; 8 MCG, BID, ORAL
     Route: 048
     Dates: start: 20120201, end: 20120201
  11. AMITIZA [Suspect]
     Indication: CONSTIPATION
     Dosage: 24 MCG, QD, ORAL; 16 MCG, QD, ORAL; 8 MCG, BID, ORAL
     Route: 048
     Dates: start: 20120201, end: 20120201
  12. BENEFIBER (CYAMOPSIS TETAGONLOBA GUM) [Concomitant]
  13. POLICOSANOL (POLICOSANOL) [Concomitant]
  14. LOSARTAN POTASSIUM (LOSARTAN) [Concomitant]
  15. VITAMIN D [Concomitant]
  16. CARVEDILOL [Concomitant]
  17. NIASPAN [Concomitant]
  18. LOVAZA [Concomitant]
  19. EFFIENT [Concomitant]

REACTIONS (12)
  - MIDDLE INSOMNIA [None]
  - BOWEL MOVEMENT IRREGULARITY [None]
  - BLOOD PRESSURE INCREASED [None]
  - CARDIAC DISORDER [None]
  - DRUG EFFECT DECREASED [None]
  - GASTRITIS [None]
  - DIARRHOEA [None]
  - IRRITABLE BOWEL SYNDROME [None]
  - DIZZINESS [None]
  - CHEST PAIN [None]
  - VIRAL INFECTION [None]
  - DRUG INTOLERANCE [None]
